FAERS Safety Report 10720714 (Version 1)
Quarter: 2015Q1

REPORT INFORMATION
  Report Type: Spontaneous
  Country: US (occurrence: US)
  Receive Date: 20150119
  Receipt Date: 20150119
  Transmission Date: 20150721
  Serious: No
  Sender: FDA-Public Use
  Company Number: US-UNITED THERAPEUTICS-UNT-2014-005827

PATIENT
  Age: 80 Year
  Sex: Female
  Weight: 84.35 kg

DRUGS (2)
  1. TYVASO [Suspect]
     Active Substance: TREPROSTINIL
     Indication: COR PULMONALE CHRONIC
     Dosage: 18-54 MICROGRAMS, QID
     Dates: start: 20140807, end: 20140827
  2. ADCIRCA [Concomitant]
     Active Substance: TADALAFIL
     Indication: PRODUCT USED FOR UNKNOWN INDICATION

REACTIONS (6)
  - Headache [Recovering/Resolving]
  - Throat irritation [Unknown]
  - Neck pain [Unknown]
  - Musculoskeletal discomfort [Recovering/Resolving]
  - Ear pain [Unknown]
  - Feeling jittery [Unknown]

NARRATIVE: CASE EVENT DATE: 201408
